FAERS Safety Report 14797890 (Version 1)
Quarter: 2018Q2

REPORT INFORMATION
  Report Type: Spontaneous
  Country: CR (occurrence: CR)
  Receive Date: 20180424
  Receipt Date: 20180424
  Transmission Date: 20180711
  Serious: Yes (Hospitalization)
  Sender: FDA-Public Use
  Company Number: CR-ROCHE-2111568

PATIENT
  Age: 65 Year
  Sex: Male

DRUGS (1)
  1. GAZYVA [Suspect]
     Active Substance: OBINUTUZUMAB
     Indication: B-CELL LYMPHOMA
     Dosage: THERAPY WAS SUSPENDED IN APR/2018
     Route: 065
     Dates: start: 201801

REACTIONS (1)
  - Deltaretrovirus test positive [Not Recovered/Not Resolved]

NARRATIVE: CASE EVENT DATE: 201804
